FAERS Safety Report 5344534-4 (Version None)
Quarter: 2007Q2

REPORT INFORMATION
  Report Type: 
  Country: None (occurrence: None)
  Receive Date: 20070604
  Receipt Date: 20070523
  Transmission Date: 20071010
  Serious: Yes (Other)
  Sender: FDA-Public Use
  Company Number: TN-PFIZER INC-2007042455

PATIENT
  Age: 56 Year
  Sex: Male

DRUGS (1)
  1. GABAPENTIN [Suspect]
     Indication: FORMICATION
     Dosage: DAILY DOSE:900MG
     Route: 048

REACTIONS (2)
  - ASTHENIA [None]
  - ERECTILE DYSFUNCTION [None]
